FAERS Safety Report 5525340-4 (Version None)
Quarter: 2007Q4

REPORT INFORMATION
  Report Type: 
  Country: None (occurrence: None)
  Receive Date: 20071120
  Receipt Date: 20071106
  Transmission Date: 20080405
  Serious: Yes (Death, Other)
  Sender: FDA-Public Use
  Company Number: MC200700689

PATIENT
  Age: 29 Year
  Sex: Female

DRUGS (2)
  1. ANGIOMAX [Suspect]
     Indication: CATHETERISATION CARDIAC
     Dates: start: 20071102
  2. PLAVIX [Suspect]
     Dosage: 300 MG, SINGLE
     Dates: start: 20071102, end: 20071102

REACTIONS (2)
  - CARDIO-RESPIRATORY ARREST [None]
  - THROMBOSIS [None]
